FAERS Safety Report 6181273-4 (Version None)
Quarter: 2009Q2

REPORT INFORMATION
  Report Type: 
  Country: None (occurrence: None)
  Receive Date: 20090504
  Receipt Date: 20090420
  Transmission Date: 20091009
  Serious: Yes (Hospitalization)
  Sender: FDA-Public Use
  Company Number: 2009IL0004

PATIENT
  Age: 2 Year
  Sex: Male

DRUGS (2)
  1. ORFADIN [Suspect]
     Indication: TYROSINAEMIA
     Dosage: 10 MG (10 MG, 1 IN 1 D), ORAL
     Route: 048
     Dates: start: 20051001
  2. AUGMENTIN (AMOXICILLIN, CLAVULANATE) [Concomitant]

REACTIONS (10)
  - ABDOMINAL PAIN [None]
  - ANOREXIA [None]
  - AZOTAEMIA [None]
  - DEHYDRATION [None]
  - ECONOMIC PROBLEM [None]
  - HYPERTENSION [None]
  - INCORRECT DOSE ADMINISTERED [None]
  - PNEUMONIA [None]
  - PORPHYRIA ACUTE [None]
  - TREATMENT NONCOMPLIANCE [None]
